FAERS Safety Report 14324327 (Version 2)
Quarter: 2018Q1

REPORT INFORMATION
  Report Type: Report from Study
  Country: US (occurrence: US)
  Receive Date: 20171226
  Receipt Date: 20180125
  Transmission Date: 20180509
  Serious: Yes (Other)
  Sender: FDA-Public Use
  Company Number: US-JNJFOC-20160213899

PATIENT
  Age: 75 Year
  Sex: Male

DRUGS (13)
  1. IMBRUVICA [Suspect]
     Active Substance: IBRUTINIB
     Indication: CHRONIC LYMPHOCYTIC LEUKAEMIA
     Route: 048
     Dates: start: 20141027
  2. ELIQUIS [Concomitant]
     Active Substance: APIXABAN
  3. MIRALAX [Concomitant]
     Active Substance: POLYETHYLENE GLYCOL 3350
  4. KLONOPIN [Concomitant]
     Active Substance: CLONAZEPAM
  5. FLOMAX [Concomitant]
     Active Substance: TAMSULOSIN HYDROCHLORIDE
  6. VITAMIN D3 [Concomitant]
     Active Substance: CHOLECALCIFEROL
  7. CRANBERRY. [Concomitant]
     Active Substance: CRANBERRY
  8. IMBRUVICA [Suspect]
     Active Substance: IBRUTINIB
     Indication: CHRONIC LYMPHOCYTIC LEUKAEMIA
     Route: 048
     Dates: start: 20141031
  9. CALCIUM [Concomitant]
     Active Substance: CALCIUM
  10. ALLOPURINOL. [Concomitant]
     Active Substance: ALLOPURINOL
  11. COREG [Concomitant]
     Active Substance: CARVEDILOL
  12. BIOTIN [Concomitant]
     Active Substance: BIOTIN
  13. LEVOFLOXACIN. [Concomitant]
     Active Substance: LEVOFLOXACIN

REACTIONS (9)
  - Pneumonia [Unknown]
  - Product physical issue [Unknown]
  - Staphylococcal infection [Unknown]
  - Ingrowing nail [Unknown]
  - Pharyngeal disorder [Unknown]
  - Bronchitis [Unknown]
  - Palpitations [Unknown]
  - Vagus nerve disorder [Unknown]
  - Atrial fibrillation [Unknown]

NARRATIVE: CASE EVENT DATE: 201606
